FAERS Safety Report 9541517 (Version 1)
Quarter: 2013Q3

REPORT INFORMATION
  Report Type: Spontaneous
  Country: US (occurrence: None)
  Receive Date: 20130919
  Receipt Date: 20130919
  Transmission Date: 20140515
  Serious: Yes (Other)
  Sender: FDA-Public Use
  Company Number: None

PATIENT
  Age: 77 Year
  Sex: Female
  Weight: 69.5 kg

DRUGS (11)
  1. PRADAXA [Suspect]
     Indication: ANTICOAGULANT THERAPY
     Dosage: PRADAXA 150 MG BID P.O.
     Route: 048
     Dates: start: 201302, end: 20130828
  2. MULTAQ [Suspect]
     Indication: ATRIAL FLUTTER
     Dosage: MULTAQ 400MG BID P.O.
     Route: 048
     Dates: start: 20130824
  3. MULTAQ [Suspect]
     Indication: ATRIAL FIBRILLATION
     Dosage: MULTAQ 400MG BID P.O.
     Route: 048
     Dates: start: 20130824
  4. LEVOTHYROXINE [Concomitant]
  5. KOMBIGLYZE XR [Concomitant]
  6. ZIAC [Concomitant]
  7. ZIAC [Concomitant]
  8. AVAPRO [Concomitant]
  9. ZOCOR [Concomitant]
  10. SINGULAIR [Concomitant]
  11. AMLODIPINE [Concomitant]

REACTIONS (3)
  - Local swelling [None]
  - Contusion [None]
  - Mass [None]
